FAERS Safety Report 25854357 (Version 2)
Quarter: 2025Q4

REPORT INFORMATION
  Report Type: Report from Study
  Country: US (occurrence: US)
  Receive Date: 20250927
  Receipt Date: 20251103
  Transmission Date: 20260117
  Serious: Yes (Hospitalization)
  Sender: ABBVIE
  Company Number: US-ABBVIE-6477592

PATIENT
  Age: 75 Year
  Sex: Female

DRUGS (2)
  1. VENCLEXTA [Suspect]
     Active Substance: VENETOCLAX
     Indication: Plasma cell myeloma
     Dosage: LAST ADMIN 2025, MISSED DOSE
     Route: 048
     Dates: start: 202503
  2. VENCLEXTA [Suspect]
     Active Substance: VENETOCLAX
     Indication: Plasma cell myeloma
     Dosage: FIRST ADMIN 2025,
     Route: 048

REACTIONS (3)
  - Arthropathy [Unknown]
  - Chest X-ray abnormal [Unknown]
  - Chondrocalcinosis [Unknown]

NARRATIVE: CASE EVENT DATE: 20250101
